FAERS Safety Report 10273241 (Version 1)
Quarter: 2014Q1

REPORT INFORMATION
  Report Type: Spontaneous
  Country: US (occurrence: None)
  Receive Date: 20140306
  Receipt Date: 20140306
  Transmission Date: 20141002
  Serious: Yes (Other)
  Sender: FDA-Public Use
  Company Number: 163-21880-13083682

PATIENT
  Age: 76 Year
  Sex: Male

DRUGS (9)
  1. REVLIMID [Suspect]
     Indication: PLASMA CELL MYELOMA
     Dosage: 25 MG, 21 IN 28 D, PO
     Route: 048
     Dates: start: 20130423
  2. FLUTICASONE (FLUTICASONE) (SPRAY (NOT INHALATION)) [Concomitant]
  3. AMOX TR-K CLV (UNKNOWN) [Concomitant]
  4. ASPIRINE (ACETYLSALICYLIC ACID) (UNKNOWN) [Concomitant]
  5. MULTIVITAMINS (MULTIVITAMINS) (UNKNOWN) [Concomitant]
  6. DEXAMETHASONE (DEXAMETHASONE) (UNKNOWN) [Concomitant]
  7. NEXIUM (ESOMEPRAZOLE) (UNKNOWN) [Concomitant]
  8. BENADRYL (CLONALIN) (UNKNOWN) [Concomitant]
  9. FISH OIL (FISH OIL) (UNKNOWN) [Concomitant]

REACTIONS (1)
  - Atrial flutter [None]
